FAERS Safety Report 6527408-2 (Version None)
Quarter: 2010Q1

REPORT INFORMATION
  Report Type: 
  Country: None (occurrence: None)
  Receive Date: 20100105
  Receipt Date: 20091123
  Transmission Date: 20100710
  Serious: Yes (Other)
  Sender: FDA-Public Use
  Company Number: SE-PFIZER INC-2009301749

PATIENT

DRUGS (1)
  1. DEPO-MEDROL [Suspect]
     Dosage: UNK
     Route: 050
     Dates: start: 20091109, end: 20091109

REACTIONS (2)
  - INJECTION SITE NECROSIS [None]
  - VESSEL PERFORATION [None]
